FAERS Safety Report 7395632-5 (Version None)
Quarter: 2011Q2

REPORT INFORMATION
  Report Type: 
  Country: None (occurrence: None)
  Receive Date: 20110405
  Receipt Date: 20110330
  Transmission Date: 20111010
  Serious: Yes (Other)
  Sender: FDA-Public Use
  Company Number: CHPA2011US04714

PATIENT
  Age: 54 Year
  Sex: Female

DRUGS (5)
  1. TRILEPTAL [Concomitant]
  2. LORAZEPAM [Concomitant]
  3. CARDIAC THERAPY [Concomitant]
  4. LAMICTAL [Concomitant]
  5. KROGER PLP [Suspect]
     Indication: SMOKING CESSATION THERAPY
     Dosage: 21 MG, QD
     Route: 062
     Dates: start: 20110328

REACTIONS (4)
  - FALL [None]
  - DIZZINESS [None]
  - BALANCE DISORDER [None]
  - VISUAL IMPAIRMENT [None]
